FAERS Safety Report 8127717-X (Version None)
Quarter: 2012Q1

REPORT INFORMATION
  Report Type: 
  Country: None (occurrence: None)
  Receive Date: 20120210
  Receipt Date: 20120202
  Transmission Date: 20120608
  Serious: Yes (Life-Threatening, Hospitalization, Other)
  Sender: FDA-Public Use
  Company Number: GR-ABBOTT-11P-066-0713037-00

PATIENT
  Sex: Female
  Weight: 72 kg

DRUGS (4)
  1. HUMIRA [Suspect]
     Indication: CROHN'S DISEASE
     Route: 058
     Dates: start: 20090611, end: 20110205
  2. HUMIRA [Concomitant]
     Dosage: PRIOR TO STUDY ENROLLMENT
     Route: 058
     Dates: start: 20080520, end: 20080520
  3. HUMIRA [Concomitant]
     Dosage: WEEK 2 PRIOR TO ENROLLMENT
     Route: 058
  4. HUMIRA [Concomitant]
     Route: 058
     Dates: end: 20090601

REACTIONS (1)
  - MALIGNANT MELANOMA [None]
